FAERS Safety Report 25372863 (Version 2)
Quarter: 2025Q3

REPORT INFORMATION
  Report Type: Report from Study
  Country: US (occurrence: US)
  Receive Date: 20250529
  Receipt Date: 20250721
  Transmission Date: 20251020
  Serious: Yes (Hospitalization, Other)
  Sender: BAYER HEALTHCARE PHARMACEUTICALS INC.
  Company Number: US-BAYER-2025A060044

PATIENT
  Age: 76 Year
  Sex: Female
  Weight: 106.58 kg

DRUGS (22)
  1. ADEMPAS [Suspect]
     Active Substance: RIOCIGUAT
     Indication: Pulmonary arterial hypertension
     Dates: start: 20240614
  2. ADEMPAS [Suspect]
     Active Substance: RIOCIGUAT
     Indication: Pulmonary arterial hypertension
     Dosage: 2.5 MG, TID
     Route: 048
  3. ADEMPAS [Suspect]
     Active Substance: RIOCIGUAT
     Indication: Pulmonary arterial hypertension
     Dosage: 2.5 MG, TID
     Route: 048
  4. VITAMINS [Concomitant]
     Active Substance: VITAMINS
  5. CITALOPRAM HYDROBROMIDE [Concomitant]
     Active Substance: CITALOPRAM HYDROBROMIDE
  6. POTASSIUM CHLORIDE [Concomitant]
     Active Substance: POTASSIUM CHLORIDE
  7. VITAMIN D3 [Concomitant]
     Active Substance: CHOLECALCIFEROL
  8. MAGNESIUM [Concomitant]
     Active Substance: MAGNESIUM
  9. ELIQUIS [Concomitant]
     Active Substance: APIXABAN
  10. METOPROLOL SUCCINATE [Concomitant]
     Active Substance: METOPROLOL SUCCINATE
  11. MECLIZINE HYDROCHLORIDE [Concomitant]
     Active Substance: MECLIZINE HYDROCHLORIDE
  12. CLINDAMYCIN HYDROCHLORIDE [Concomitant]
     Active Substance: CLINDAMYCIN HYDROCHLORIDE
  13. Dulcolax [Concomitant]
  14. ATORVASTATIN CALCIUM [Concomitant]
     Active Substance: ATORVASTATIN CALCIUM
  15. SPIRONOLACTONE [Concomitant]
     Active Substance: SPIRONOLACTONE
  16. DESONIDE [Concomitant]
     Active Substance: DESONIDE
  17. CLOBETASOL [Concomitant]
     Active Substance: CLOBETASOL
  18. FUROSEMIDE [Concomitant]
     Active Substance: FUROSEMIDE
  19. OZEMPIC [Concomitant]
     Active Substance: SEMAGLUTIDE
  20. ONDANSETRON HYDROCHLORIDE [Concomitant]
     Active Substance: ONDANSETRON HYDROCHLORIDE
  21. VITAMIN B COMPLEX [Concomitant]
     Active Substance: CYANOCOBALAMIN\DEXPANTHENOL\NIACINAMIDE\PYRIDOXINE HYDROCHLORIDE\RIBOFLAVIN 5^-PHOSPHATE SODIUM\THIA
  22. Emolliens [Concomitant]

REACTIONS (10)
  - Anaemia [Not Recovered/Not Resolved]
  - Dyspnoea [None]
  - Asthenia [None]
  - Sleep apnoea syndrome [None]
  - Haemoglobin decreased [None]
  - Haemoglobin decreased [Not Recovered/Not Resolved]
  - Dyspepsia [None]
  - Crying [Not Recovered/Not Resolved]
  - Emotional disorder [None]
  - Joint swelling [Recovered/Resolved]

NARRATIVE: CASE EVENT DATE: 20240401
